FAERS Safety Report 8416314-4 (Version None)
Quarter: 2012Q2

REPORT INFORMATION
  Report Type: 
  Country: None (occurrence: None)
  Receive Date: 20120323
  Receipt Date: 20110802
  Transmission Date: 20120825
  Serious: Yes (Hospitalization)
  Sender: FDA-Public Use
  Company Number: 163-21880-11080396

PATIENT
  Age: 58 Year
  Sex: Male
  Weight: 67.1324 kg

DRUGS (1)
  1. REVLIMID [Suspect]
     Indication: MULTIPLE MYELOMA
     Dosage: 10 MG, 1 IN 1 D, PO
     Route: 048
     Dates: start: 20101101

REACTIONS (3)
  - PULMONARY EMBOLISM [None]
  - RASH PRURITIC [None]
  - THROMBOSIS [None]
